FAERS Safety Report 6503044-9 (Version None)
Quarter: 2009Q4

REPORT INFORMATION
  Report Type: 
  Country: None (occurrence: None)
  Receive Date: 20091217
  Receipt Date: 20091214
  Transmission Date: 20100525
  Serious: Yes (Death)
  Sender: FDA-Public Use
  Company Number: GB-ROCHE-670945

PATIENT
  Age: 56 Year
  Sex: Female

DRUGS (4)
  1. TAMIFLU [Suspect]
     Indication: H1N1 INFLUENZA
     Route: 065
  2. ANADIN EXTRA [Suspect]
     Indication: DRUG USE FOR UNKNOWN INDICATION
     Route: 065
  3. ZOLPIDEM [Concomitant]
  4. CO-CODAMOL [Concomitant]

REACTIONS (4)
  - FALL [None]
  - GASTRIC ULCER HAEMORRHAGE [None]
  - GASTROINTESTINAL HAEMORRHAGE [None]
  - HEPATIC STEATOSIS [None]
